FAERS Safety Report 16246791 (Version 4)
Quarter: 2020Q3

REPORT INFORMATION
  Report Type: Spontaneous
  Country: IT (occurrence: IT)
  Receive Date: 20190427
  Receipt Date: 20200929
  Transmission Date: 20201102
  Serious: Yes (Death)
  Sender: FDA-Public Use
  Company Number: IT-ACCORD-124108

PATIENT
  Age: 45 Year
  Sex: Female

DRUGS (34)
  1. GENTAMICIN. [Concomitant]
     Active Substance: GENTAMICIN
     Route: 061
     Dates: start: 20021106, end: 20021110
  2. POVIDONE?IODINE. [Concomitant]
     Active Substance: POVIDONE-IODINE
     Dates: start: 20021106, end: 20021110
  3. RIFAMYCIN [Concomitant]
     Active Substance: RIFAMYCIN
     Dates: start: 20021104, end: 20021106
  4. ITRACONAZOLE. [Suspect]
     Active Substance: ITRACONAZOLE
     Indication: ORAL CANDIDIASIS
     Dates: start: 20021009, end: 20021106
  5. CANRENOIC ACID [Suspect]
     Active Substance: CANRENOIC ACID
     Indication: AGITATION
     Route: 048
     Dates: start: 20021004, end: 20021015
  6. RANITIDINE. [Concomitant]
     Active Substance: RANITIDINE
     Route: 042
     Dates: start: 20021103, end: 20021110
  7. FUROSEMIDE. [Suspect]
     Active Substance: FUROSEMIDE
     Indication: OLIGURIA
     Route: 042
     Dates: start: 20021027, end: 20021106
  8. CEFACLOR. [Suspect]
     Active Substance: CEFACLOR
     Indication: CYSTITIS
     Dates: end: 20020927
  9. HALOPERIDOL. [Suspect]
     Active Substance: HALOPERIDOL
     Indication: HALLUCINATION
     Route: 048
     Dates: start: 20021009, end: 20021104
  10. HYDROCORTISONE. [Concomitant]
     Active Substance: HYDROCORTISONE
     Route: 042
     Dates: start: 20021103, end: 20021106
  11. CHLORPHENAMINE/CHLORPHENAMINE MALEATE/CHLORPHENAMINE RESINATE/CHLORPHENAMINE TANNATE [Concomitant]
     Active Substance: CHLORPHENIRAMINE
     Dates: start: 20021106, end: 20021110
  12. CORTISONE [Suspect]
     Active Substance: CORTISONE
     Indication: PRODUCT USED FOR UNKNOWN INDICATION
     Dosage: 50 MG (DAILY DOSE)
     Dates: start: 20020927, end: 20021103
  13. OMEPRAZOLE. [Suspect]
     Active Substance: OMEPRAZOLE
     Indication: PRODUCT USED FOR UNKNOWN INDICATION
     Dosage: 20 MG (DAILY DOSE)
     Route: 048
     Dates: start: 20020927, end: 20021103
  14. NYSTATIN/NYSTATIN/LIPOSOME [Suspect]
     Active Substance: NYSTATIN
     Indication: ORAL CANDIDIASIS
     Dosage: 12 ML (DAILY DOSE)
     Dates: start: 20020927, end: 20020927
  15. CLAVUMOX [Suspect]
     Active Substance: AMOXICILLIN\CLAVULANATE POTASSIUM
     Indication: PNEUMONIA
     Dosage: 1200 MG, TID
     Route: 042
     Dates: start: 20021004, end: 20021019
  16. DIAZEPAM. [Suspect]
     Active Substance: DIAZEPAM
     Indication: AGITATION
     Dates: start: 20021009
  17. FLUDROCORTISONE [Suspect]
     Active Substance: FLUDROCORTISONE
     Indication: PRODUCT USED FOR UNKNOWN INDICATION
     Dates: start: 20020927, end: 20021024
  18. METOCLOPRAMIDE. [Suspect]
     Active Substance: METOCLOPRAMIDE
     Indication: PRODUCT USED FOR UNKNOWN INDICATION
     Dates: end: 20020927
  19. AMOXICILLIN/CLAVULANIC ACID [Suspect]
     Active Substance: AMOXICILLIN\CLAVULANIC ACID
     Indication: PNEUMONIA
     Dosage: 3600 MG, QD
     Route: 042
     Dates: start: 20021004
  20. CALCIUM [Concomitant]
     Active Substance: CALCIUM
     Dates: start: 20020927
  21. ALUMINIUM HYDROXIDE/ALUMINIUM HYDROXIDE GEL/ALUMINIUM HYDROXIDE GEL/DRIED [Concomitant]
     Route: 048
     Dates: start: 20020927, end: 20021106
  22. ASCORBIC ACID/GLUCOSE [Concomitant]
     Route: 041
     Dates: start: 20021106, end: 20021110
  23. PIPERACILLIN. [Concomitant]
     Active Substance: PIPERACILLIN SODIUM
     Dates: start: 20021102, end: 20021104
  24. PANTOPRAZOLE [Suspect]
     Active Substance: PANTOPRAZOLE
     Indication: PRODUCT USED FOR UNKNOWN INDICATION
     Dates: start: 20021009, end: 20021106
  25. FUROSEMIDE. [Suspect]
     Active Substance: FUROSEMIDE
     Indication: PRODUCT USED FOR UNKNOWN INDICATION
     Dosage: UNK
     Route: 048
     Dates: start: 20021004
  26. CALCIUM GLUCONATE. [Suspect]
     Active Substance: CALCIUM GLUCONATE
     Indication: PRODUCT USED FOR UNKNOWN INDICATION
     Dates: start: 20021009, end: 20021110
  27. CALCIUM CARBONATE. [Suspect]
     Active Substance: CALCIUM CARBONATE
     Indication: PRODUCT USED FOR UNKNOWN INDICATION
     Dosage: 1 G (DAILY DOSE)
     Dates: start: 20020927, end: 20020927
  28. DIAZEMULS [Suspect]
     Active Substance: DIAZEPAM
     Indication: AGITATION
     Dates: start: 20021009, end: 20021106
  29. MAGNESIUM HYDROXIDE. [Concomitant]
     Active Substance: MAGNESIUM HYDROXIDE
     Dates: start: 20020927
  30. INSULIN [Concomitant]
     Active Substance: INSULIN NOS
     Dates: start: 20021106, end: 20021110
  31. BETAMETHASONE. [Suspect]
     Active Substance: BETAMETHASONE
     Indication: PRODUCT USED FOR UNKNOWN INDICATION
     Dates: end: 20020927
  32. RABEPRAZOLE/RABEPRAZOLE SODIUM [Suspect]
     Active Substance: RABEPRAZOLE SODIUM
     Indication: PRODUCT USED FOR UNKNOWN INDICATION
     Dates: end: 20020927
  33. CALCITRIOL. [Suspect]
     Active Substance: CALCITRIOL
     Indication: PRODUCT USED FOR UNKNOWN INDICATION
     Dosage: 0.5 MICROGRAM (DAILY DOSE)
     Dates: start: 20020927, end: 20021106
  34. LEVOFLOXACIN. [Suspect]
     Active Substance: LEVOFLOXACIN
     Indication: PNEUMONIA
     Dosage: 500 MG (DAILY DOSE)
     Route: 048
     Dates: start: 20021004, end: 20021019

REACTIONS (12)
  - Mouth ulceration [Fatal]
  - Rash erythematous [Fatal]
  - Septic shock [Fatal]
  - Blister [Fatal]
  - Skin infection [Fatal]
  - Skin lesion [Fatal]
  - Rash macular [Fatal]
  - Rash [Fatal]
  - Skin exfoliation [Fatal]
  - Pyrexia [Fatal]
  - Toxic epidermal necrolysis [Fatal]
  - Staphylococcal sepsis [Fatal]

NARRATIVE: CASE EVENT DATE: 200210
